FAERS Safety Report 5161616-0 (Version None)
Quarter: 2006Q4

REPORT INFORMATION
  Report Type: 
  Country: None (occurrence: None)
  Receive Date: 20061121
  Receipt Date: 20061106
  Transmission Date: 20070319
  Serious: Yes (Death, Hospitalization)
  Sender: FDA-Public Use
  Company Number: 2006123253

PATIENT
  Age: 74 Year
  Sex: Male

DRUGS (13)
  1. SUTENT [Suspect]
     Indication: METASTASES TO LIVER
     Dosage: 50 MG (50 MG, 1 IN 1 D), ORAL
     Route: 048
     Dates: start: 20060908
  2. SUTENT [Suspect]
     Indication: RENAL CELL CARCINOMA STAGE UNSPECIFIED
     Dosage: 50 MG (50 MG, 1 IN 1 D), ORAL
     Route: 048
     Dates: start: 20060908
  3. PARAFFIN (PARAFFIN) [Concomitant]
  4. DURAGESIC-100 [Concomitant]
  5. ACETAMINOPHEN [Concomitant]
  6. MEDROL [Concomitant]
  7. ZOFRAN [Concomitant]
  8. LAXOBERAL (SODIUM PICOSULFATE) [Concomitant]
  9. ZOPICLONE (ZOPICLONE) [Concomitant]
  10. LACTULOSE [Concomitant]
  11. LYRICA [Concomitant]
  12. DICLOFENAC SODIUM [Concomitant]
  13. PANTOPRAZOLE SODIUM [Concomitant]

REACTIONS (16)
  - ASTHENIA [None]
  - ATELECTASIS [None]
  - BLOOD CREATININE INCREASED [None]
  - BLOOD POTASSIUM INCREASED [None]
  - C-REACTIVE PROTEIN INCREASED [None]
  - CONFUSIONAL STATE [None]
  - DYSARTHRIA [None]
  - EXTENSOR PLANTAR RESPONSE [None]
  - GAIT DISTURBANCE [None]
  - GENERAL PHYSICAL HEALTH DETERIORATION [None]
  - HAEMOGLOBIN DECREASED [None]
  - PAIN [None]
  - PLATELET COUNT INCREASED [None]
  - RESPIRATION ABNORMAL [None]
  - SOMNOLENCE [None]
  - WHITE BLOOD CELL COUNT INCREASED [None]
